FAERS Safety Report 8011270-5 (Version None)
Quarter: 2011Q4

REPORT INFORMATION
  Report Type: 
  Country: None (occurrence: None)
  Receive Date: 20111227
  Receipt Date: 20111227
  Transmission Date: 20120403
  Serious: Yes (Life-Threatening, Hospitalization)
  Sender: FDA-Public Use
  Company Number: None

PATIENT
  Sex: Male
  Weight: 86.182 kg

DRUGS (1)
  1. LARIAM [Suspect]
     Indication: MALARIA PROPHYLAXIS
     Dosage: 1PILL
     Route: 048
     Dates: start: 20000201, end: 20000408

REACTIONS (10)
  - MAJOR DEPRESSION [None]
  - CONVULSION [None]
  - HYPERACUSIS [None]
  - VESTIBULAR NEURONITIS [None]
  - NEUROPATHY PERIPHERAL [None]
  - APHASIA [None]
  - INSOMNIA [None]
  - PHOTOPHOBIA [None]
  - AMNESIA [None]
  - BRAIN INJURY [None]
